FAERS Safety Report 18639905 (Version 1)
Quarter: 2020Q4

REPORT INFORMATION
  Report Type: Spontaneous
  Country: US (occurrence: US)
  Receive Date: 20201220
  Receipt Date: 20201220
  Transmission Date: 20210114
  Serious: No
  Sender: FDA-Public Use
  Company Number: US-PACIRA-201900426

PATIENT
  Age: 61 Year
  Sex: Female

DRUGS (1)
  1. EXPAREL [Suspect]
     Active Substance: BUPIVACAINE
     Indication: NERVE BLOCK
     Dosage: 266 MG EXPANDED WITH 10 ML OF NORMAL SALINE, ONE TIME ADMINISTRATION
     Route: 065
     Dates: start: 20191210, end: 20191210

REACTIONS (2)
  - Therapeutic product effect decreased [Unknown]
  - Pain [Not Recovered/Not Resolved]

NARRATIVE: CASE EVENT DATE: 20191210
